FAERS Safety Report 19574418 (Version 1)
Quarter: 2021Q3

REPORT INFORMATION
  Report Type: Spontaneous
  Country: US (occurrence: US)
  Receive Date: 20210719
  Receipt Date: 20210719
  Transmission Date: 20211014
  Serious: No
  Sender: FDA-Public Use
  Company Number: US-MTPC-MTDA2021-0017018

PATIENT
  Sex: Female

DRUGS (2)
  1. RADICAVA [Suspect]
     Active Substance: EDARAVONE
     Dosage: UNK 10 DAYS ON AND 10 DAYS OFF
     Route: 065
  2. RADICAVA [Suspect]
     Active Substance: EDARAVONE
     Indication: PRODUCT USED FOR UNKNOWN INDICATION
     Dosage: UNK 10 DAYS ON AND 10 DAYS OFF
     Route: 065
     Dates: end: 20210629

REACTIONS (1)
  - Inappropriate schedule of product administration [Unknown]
